FAERS Safety Report 5112939-2 (Version None)
Quarter: 2006Q3

REPORT INFORMATION
  Report Type: 
  Country: None (occurrence: None)
  Receive Date: 20060920
  Receipt Date: 20060906
  Transmission Date: 20061208
  Serious: Yes (Death)
  Sender: FDA-Public Use
  Company Number: 2006CT000719

PATIENT
  Age: 45 Year
  Sex: Male
  Weight: 90.7194 kg

DRUGS (8)
  1. VENTAVIS [Suspect]
     Indication: PULMONARY HYPERTENSION
     Dosage: 5 UG;6XD;INH
     Route: 055
     Dates: start: 20051017, end: 20060905
  2. APAP TAB [Concomitant]
  3. LASIX [Concomitant]
  4. METOLAZONE [Concomitant]
  5. SILDENAFIL [Concomitant]
  6. WARFARIN SODIUM [Concomitant]
  7. TIOTROPIUM BROMIDE [Concomitant]
  8. MULTIVITAMIN [Concomitant]

REACTIONS (1)
  - RESPIRATORY FAILURE [None]
